FAERS Safety Report 4516853-2 (Version None)
Quarter: 2004Q4

REPORT INFORMATION
  Report Type: 
  Country: None (occurrence: None)
  Receive Date: 20041202
  Receipt Date: 20041119
  Transmission Date: 20050328
  Serious: Yes (Death)
  Sender: FDA-Public Use
  Company Number: ES-GLAXOSMITHKLINE-B0358422A

PATIENT
  Age: 77 Year
  Sex: Female

DRUGS (1)
  1. ARIXTRA [Suspect]
     Indication: THROMBOSIS PROPHYLAXIS
     Dates: start: 20040421, end: 20040423

REACTIONS (3)
  - DRUG INEFFECTIVE [None]
  - PULMONARY EMBOLISM [None]
  - SUDDEN DEATH [None]
